FAERS Safety Report 8459471-6 (Version None)
Quarter: 2012Q2

REPORT INFORMATION
  Report Type: 
  Country: None (occurrence: None)
  Receive Date: 20120622
  Receipt Date: 20120612
  Transmission Date: 20120825
  Serious: Yes (Other)
  Sender: FDA-Public Use
  Company Number: US-JNJFOC-20120606149

PATIENT
  Sex: Female
  Weight: 57.61 kg

DRUGS (5)
  1. DURAGESIC-100 [Suspect]
     Indication: FIBROMYALGIA
     Route: 062
     Dates: start: 20030101, end: 20050101
  2. DURAGESIC-100 [Suspect]
     Route: 062
     Dates: start: 20060101, end: 20090101
  3. DURAGESIC-100 [Suspect]
     Route: 062
     Dates: start: 20090101
  4. LEXAPRO [Concomitant]
     Indication: DEPRESSION
     Route: 048
     Dates: start: 20000101
  5. KLONOPIN [Concomitant]
     Indication: ANXIETY
     Route: 048
     Dates: start: 20000101

REACTIONS (11)
  - TRACHEAL DEVIATION [None]
  - APPLICATION SITE ERYTHEMA [None]
  - APPLICATION SITE VESICLES [None]
  - HYPOTHYROIDISM [None]
  - APPLICATION SITE PRURITUS [None]
  - THYROID NEOPLASM [None]
  - PRODUCT QUALITY ISSUE [None]
  - VITAMIN D DEFICIENCY [None]
  - INCORRECT DRUG ADMINISTRATION DURATION [None]
  - PAIN [None]
  - SPINAL OSTEOARTHRITIS [None]
